FAERS Safety Report 10270380 (Version 2)
Quarter: 2014Q3

REPORT INFORMATION
  Report Type: Report from Study
  Country: FR (occurrence: FR)
  Receive Date: 20140701
  Receipt Date: 20140929
  Transmission Date: 20150326
  Serious: Yes (Life-Threatening)
  Sender: FDA-Public Use
  Company Number: FR-BAYER-2014-095556

PATIENT
  Age: 86 Year
  Sex: Female

DRUGS (6)
  1. INNOHEP [Concomitant]
     Active Substance: TINZAPARIN SODIUM
     Indication: THROMBOSIS IN DEVICE
     Dosage: 0.5 ML, UNK
     Dates: start: 20130130
  2. SOLUPRED [PREDNISOLONE] [Concomitant]
     Active Substance: PREDNISOLONE
     Indication: ASTHENIA
     Dosage: 20 MG, QD
     Dates: start: 2013
  3. REGORAFENIB [Suspect]
     Active Substance: REGORAFENIB
     Indication: COLORECTAL CANCER METASTATIC
     Dosage: DAILY DOSE 80 MG
     Dates: start: 20130528
  4. DOLIPRANE [Concomitant]
     Active Substance: ACETAMINOPHEN
     Indication: NAUSEA
     Dosage: 3 DF, QD
     Dates: start: 2012
  5. PRITOR [Concomitant]
     Active Substance: TELMISARTAN
     Indication: HYPERTENSION
     Dosage: 40 MG, QD
     Dates: start: 2011
  6. VOGALENE [Concomitant]
     Active Substance: METOPIMAZINE
     Indication: NAUSEA
     Dosage: 3 DF, QD
     Dates: start: 2012

REACTIONS (8)
  - Fatigue [Recovered/Resolved]
  - Dysphonia [Recovered/Resolved]
  - Weight decreased [Recovered/Resolved]
  - Fatigue [Recovered/Resolved]
  - Diarrhoea [Recovered/Resolved]
  - Blood creatinine increased [Recovered/Resolved]
  - Diarrhoea [Recovered/Resolved]
  - Rash maculo-papular [Recovered/Resolved]

NARRATIVE: CASE EVENT DATE: 2013
